FAERS Safety Report 5815400-2 (Version None)
Quarter: 2008Q3

REPORT INFORMATION
  Report Type: 
  Country: None (occurrence: None)
  Receive Date: 20080718
  Receipt Date: 20080708
  Transmission Date: 20090109
  Serious: Yes (Hospitalization, Other)
  Sender: FDA-Public Use
  Company Number: JP-PFIZER INC-2008053347

PATIENT
  Sex: Male
  Weight: 35 kg

DRUGS (5)
  1. ZYVOX [Interacting]
     Indication: PNEUMONIA STAPHYLOCOCCAL
     Route: 042
     Dates: start: 20080609, end: 20080609
  2. ZYVOX [Interacting]
     Route: 042
     Dates: start: 20080616, end: 20080627
  3. DALACIN S [Suspect]
     Indication: BACTERIAL INFECTION
     Route: 042
     Dates: start: 20080606, end: 20080608
  4. DEPAKENE [Concomitant]
     Route: 048
  5. ROCEPHIN [Concomitant]
     Indication: BACTERIAL INFECTION
     Route: 042
     Dates: start: 20080606, end: 20080627

REACTIONS (4)
  - ANTICONVULSANT DRUG LEVEL DECREASED [None]
  - CONVULSION [None]
  - DRUG INEFFECTIVE [None]
  - DRUG INTERACTION [None]
